FAERS Safety Report 25470118 (Version 1)
Quarter: 2025Q2

REPORT INFORMATION
  Report Type: Spontaneous
  Country: US (occurrence: US)
  Receive Date: 20250623
  Receipt Date: 20250623
  Transmission Date: 20250717
  Serious: No
  Sender: BRACCO
  Company Number: US-BRACCO-2024US05950

PATIENT
  Sex: Female

DRUGS (3)
  1. PROHANCE [Suspect]
     Active Substance: GADOTERIDOL
     Indication: Magnetic resonance imaging abdominal
     Route: 042
     Dates: start: 20240823, end: 20240823
  2. FLUTICASONE [Concomitant]
     Active Substance: FLUTICASONE
     Route: 045
  3. LEVONORGESTREL [Concomitant]
     Active Substance: LEVONORGESTREL
     Route: 005

REACTIONS (5)
  - Eye pruritus [Recovered/Resolved]
  - Throat irritation [Recovered/Resolved]
  - Ocular hyperaemia [Recovered/Resolved]
  - Pruritus [Recovered/Resolved]
  - Oedema [Recovered/Resolved]

NARRATIVE: CASE EVENT DATE: 20240823
